FAERS Safety Report 8380459-8 (Version None)
Quarter: 2012Q2

REPORT INFORMATION
  Report Type: 
  Country: None (occurrence: None)
  Receive Date: 20120523
  Receipt Date: 20120516
  Transmission Date: 20120825
  Serious: Yes (Hospitalization)
  Sender: FDA-Public Use
  Company Number: US-GLAXOSMITHKLINE-A0978460A

PATIENT
  Age: 56 Year
  Sex: Female
  Weight: 79.5 kg

DRUGS (5)
  1. PROVENTIL [Suspect]
     Indication: ASTHMA
     Route: 055
  2. NARDIL [Suspect]
     Indication: PANIC DISORDER
     Dosage: 15MG THREE TIMES PER DAY
     Route: 048
  3. ADVAIR DISKUS 100/50 [Suspect]
     Indication: ASTHMA
     Route: 055
  4. STEROID [Suspect]
     Indication: HYPOTENSION
     Route: 065
     Dates: start: 20120401
  5. XANAX [Concomitant]

REACTIONS (12)
  - DYSPNOEA [None]
  - BRONCHITIS CHRONIC [None]
  - WEIGHT DECREASED [None]
  - HEADACHE [None]
  - BLOOD GLUCOSE INCREASED [None]
  - SOMNOLENCE [None]
  - HYPERSENSITIVITY [None]
  - HYPOTENSION [None]
  - AMNESIA [None]
  - ASTHMA [None]
  - OXYGEN SATURATION DECREASED [None]
  - CHRONIC OBSTRUCTIVE PULMONARY DISEASE [None]
